FAERS Safety Report 26154449 (Version 1)
Quarter: 2025Q4

REPORT INFORMATION
  Report Type: Spontaneous
  Country: US (occurrence: US)
  Receive Date: 20251215
  Receipt Date: 20251215
  Transmission Date: 20260118
  Serious: Yes (Other)
  Sender: SPECGX
  Company Number: US-SPECGX-T202501966

PATIENT
  Age: 46 Year
  Sex: Female

DRUGS (2)
  1. DEXTROAMPHETAMINE SULFATE [Suspect]
     Active Substance: DEXTROAMPHETAMINE SULFATE
     Indication: Attention deficit hyperactivity disorder
     Dosage: UNK
     Route: 065
  2. NORETHINDRONE [Suspect]
     Active Substance: NORETHINDRONE
     Indication: Heavy menstrual bleeding
     Dosage: UNK
     Route: 065

REACTIONS (8)
  - Dyspnoea [Unknown]
  - Vaginal haemorrhage [Unknown]
  - Pulmonary hypertension [Unknown]
  - Cardiogenic shock [Unknown]
  - Cervix carcinoma [Unknown]
  - Acute kidney injury [Unknown]
  - Multiple organ dysfunction syndrome [Unknown]
  - Stress cardiomyopathy [Unknown]
